FAERS Safety Report 26073427 (Version 1)
Quarter: 2025Q4

REPORT INFORMATION
  Report Type: Spontaneous
  Country: JP (occurrence: JP)
  Receive Date: 20251121
  Receipt Date: 20251121
  Transmission Date: 20260118
  Serious: No
  Sender: ALKEM
  Company Number: JP-ALKEM LABORATORIES LIMITED-JP-ALKEM-2024-23579

PATIENT
  Age: 4 Decade
  Sex: Male

DRUGS (5)
  1. MINOCYCLINE [Suspect]
     Active Substance: MINOCYCLINE HYDROCHLORIDE
     Indication: Cutaneous tuberculosis
     Dosage: 200 MILLIGRAM, QD
     Route: 042
  2. MINOCYCLINE [Suspect]
     Active Substance: MINOCYCLINE HYDROCHLORIDE
     Indication: Nocardiosis
     Dosage: 100 MILLIGRAM, QD
     Route: 048
  3. SULFAMETHOXAZOLE\TRIMETHOPRIM [Suspect]
     Active Substance: SULFAMETHOXAZOLE\TRIMETHOPRIM
     Indication: Cutaneous tuberculosis
     Dosage: TRIMETHOPRIM-160?MILLIGRAM PER DAY AND SULFAMETHOXAZOLE AT 800?MG/DAY
     Route: 048
  4. SULFAMETHOXAZOLE\TRIMETHOPRIM [Suspect]
     Active Substance: SULFAMETHOXAZOLE\TRIMETHOPRIM
     Indication: Nocardiosis
  5. MICAFUNGIN SODIUM [Concomitant]
     Active Substance: MICAFUNGIN SODIUM
     Indication: Antifungal treatment
     Dosage: 150 MILLIGRAM, OD
     Route: 065

REACTIONS (1)
  - Therapy partial responder [Unknown]
